FAERS Safety Report 18296057 (Version 5)
Quarter: 2020Q4

REPORT INFORMATION
  Report Type: Spontaneous
  Country: BE (occurrence: BE)
  Receive Date: 20200922
  Receipt Date: 20201104
  Transmission Date: 20210113
  Serious: Yes (Death, Hospitalization)
  Sender: FDA-Public Use
  Company Number: BE-ELI_LILLY_AND_COMPANY-BE202009007236

PATIENT
  Sex: Male
  Weight: 68.25 kg

DRUGS (5)
  1. COVERSYL PLUS [INDAPAMIDE;PERINDOPRIL ERBUMIN [Concomitant]
     Indication: PRODUCT USED FOR UNKNOWN INDICATION
     Dosage: 1 DOSAGE FORM, DAILY
  2. D-CURE [Concomitant]
     Active Substance: CHOLECALCIFEROL
  3. OLUMIANT [Suspect]
     Active Substance: BARICITINIB
     Indication: RHEUMATOID ARTHRITIS
     Dosage: 4 MG, DAILY
     Route: 065
     Dates: start: 20181031, end: 20200814
  4. LEDERTREXATE [METHOTREXATE] [Concomitant]
     Active Substance: METHOTREXATE
     Indication: RHEUMATOID ARTHRITIS
     Dosage: 15 MG, WEEKLY (1/W)
     Route: 048
  5. FOLIC ACID. [Concomitant]
     Active Substance: FOLIC ACID
     Indication: PRODUCT USED FOR UNKNOWN INDICATION
     Dosage: 1 MG, DAILY

REACTIONS (6)
  - Brain abscess [Fatal]
  - Meningoencephalitis bacterial [Fatal]
  - Hyponatraemia [Unknown]
  - General physical health deterioration [Unknown]
  - Pneumonia aspiration [Unknown]
  - Brain injury [Unknown]

NARRATIVE: CASE EVENT DATE: 20200807
